FAERS Safety Report 17852098 (Version 1)
Quarter: 2020Q2

REPORT INFORMATION
  Report Type: Report from Study
  Country: IE (occurrence: IE)
  Receive Date: 20200602
  Receipt Date: 20200602
  Transmission Date: 20200714
  Serious: Yes (Other)
  Sender: FDA-Public Use
  Company Number: IE-JNJFOC-20200528357

PATIENT
  Age: 55 Year
  Sex: Male

DRUGS (11)
  1. STELARA [Suspect]
     Active Substance: USTEKINUMAB
     Indication: PSORIASIS
     Dosage: LATEST ADMINISTERED ON ADMINISTERED 28-FEB-2020
     Route: 058
     Dates: start: 20180920, end: 202005
  2. LARIG [Concomitant]
     Route: 050
  3. DALMAPAM [Concomitant]
     Route: 050
  4. GEROQUEL [Concomitant]
     Route: 050
  5. OMEPRAZOLE BLUEFISH [Concomitant]
     Active Substance: OMEPRAZOLE
     Route: 050
  6. FOLIC ACID. [Concomitant]
     Active Substance: FOLIC ACID
     Route: 050
  7. QUETIAPINE. [Concomitant]
     Active Substance: QUETIAPINE
     Route: 050
  8. MIRAP                              /01293201/ [Concomitant]
     Route: 050
  9. EPILIM [Concomitant]
     Active Substance: VALPROATE SODIUM
     Route: 050
  10. QUETEX [Concomitant]
     Active Substance: QUETIAPINE FUMARATE
     Route: 050
  11. FUNGASIL                           /00992601/ [Concomitant]
     Route: 050

REACTIONS (1)
  - Lower respiratory tract infection [Recovered/Resolved]

NARRATIVE: CASE EVENT DATE: 20200521
